FAERS Safety Report 25651496 (Version 1)
Quarter: 2025Q3

REPORT INFORMATION
  Report Type: Spontaneous
  Country: US (occurrence: US)
  Receive Date: 20250806
  Receipt Date: 20250806
  Transmission Date: 20251021
  Serious: Yes (Hospitalization, Other)
  Sender: AMGEN
  Company Number: US-AMGEN-USASP2025151522

PATIENT
  Age: 58 Year
  Sex: Male

DRUGS (9)
  1. PREDNISONE [Suspect]
     Active Substance: PREDNISONE
     Indication: Demyelination
     Route: 048
  2. LEVETIRACETAM [Concomitant]
     Active Substance: LEVETIRACETAM
     Route: 040
  3. LEVETIRACETAM [Concomitant]
     Active Substance: LEVETIRACETAM
     Route: 040
  4. LEVETIRACETAM [Concomitant]
     Active Substance: LEVETIRACETAM
     Dosage: 1000 MILLIGRAM, BID
     Route: 040
  5. LORAZEPAM [Concomitant]
     Active Substance: LORAZEPAM
     Route: 040
  6. VANCOMYCIN [Concomitant]
     Active Substance: VANCOMYCIN
  7. CEFEPIME [Concomitant]
     Active Substance: CEFEPIME HYDROCHLORIDE
  8. ACYCLOVIR [Concomitant]
     Active Substance: ACYCLOVIR
  9. SOLU-MEDROL [Concomitant]
     Active Substance: METHYLPREDNISOLONE SODIUM SUCCINATE
     Route: 040

REACTIONS (5)
  - Status epilepticus [Recovered/Resolved]
  - Pancytopenia [Unknown]
  - Seizure [Unknown]
  - Aphasia [Unknown]
  - Off label use [Unknown]
